FAERS Safety Report 9229624 (Version 3)
Quarter: 2013Q3

REPORT INFORMATION
  Report Type: Spontaneous
  Country: CA (occurrence: CA)
  Receive Date: 20130414
  Receipt Date: 20130729
  Transmission Date: 20140515
  Serious: Yes (Hospitalization)
  Sender: FDA-Public Use
  Company Number: CA-AMGEN-CANSP2013025558

PATIENT
  Age: 48 Year
  Sex: Female

DRUGS (13)
  1. ENBREL [Suspect]
     Indication: RHEUMATOID ARTHRITIS
     Dosage: 50 MG, UNK
     Route: 065
     Dates: start: 20110209
  2. MTX                                /00113801/ [Concomitant]
     Dosage: 15 MG, QWK
  3. APO HYDROXYQUINE [Concomitant]
     Dosage: 200 MG, QWK
  4. CELEBREX [Concomitant]
     Dosage: 200 MG, QD
  5. FERROUS FUMARATE [Concomitant]
     Dosage: 300 MG 1 TABLET 3X PER DAY
  6. BACLOFEN [Concomitant]
     Dosage: 10 MG 1 TABLET 3X PER DAY
  7. OMEPRAZOLE                         /00661202/ [Concomitant]
     Dosage: 20 MG 1 TABLET DAILY
  8. FOLIC ACID [Concomitant]
     Dosage: UNK
  9. VITAMIN B3 [Concomitant]
     Dosage: UNK
  10. VITAMIN E                          /00110501/ [Concomitant]
     Dosage: UNK
  11. CALCIUM [Concomitant]
     Dosage: UNK
  12. MAGNESIUM [Concomitant]
     Dosage: UNK
  13. ACUFLEX [Concomitant]
     Dosage: UNK

REACTIONS (7)
  - Hip arthroplasty [Recovered/Resolved]
  - Hip deformity [Recovering/Resolving]
  - Fall [Recovering/Resolving]
  - Vomiting [Recovered/Resolved]
  - Tendon disorder [Not Recovered/Not Resolved]
  - Ligament disorder [Not Recovered/Not Resolved]
  - Pain [Not Recovered/Not Resolved]
